FAERS Safety Report 20247887 (Version 1)
Quarter: 2021Q4

REPORT INFORMATION
  Report Type: Spontaneous
  Country: US (occurrence: US)
  Receive Date: 20211229
  Receipt Date: 20211229
  Transmission Date: 20220304
  Serious: Yes (Hospitalization)
  Sender: FDA-Public Use
  Company Number: US-Fresenius Medical Care Renal Therapies Group-FMC-2112-001885

PATIENT
  Sex: Male

DRUGS (1)
  1. DELFLEX [Suspect]
     Active Substance: CALCIUM CHLORIDE\DEXTROSE\MAGNESIUM CHLORIDE\SODIUM CHLORIDE\SODIUM LACTATE
     Indication: End stage renal disease
     Dosage: FILLS = 4; FILL VOLUME = 1500 ML; TOTAL VOLUME = 6000 ML; TOTAL SLEEP TIME = 9HRS 20MINS; DWELL TIME
     Route: 033

REACTIONS (4)
  - Vomiting [Unknown]
  - Weight decreased [Unknown]
  - Hypocalcaemia [Recovered/Resolved]
  - Treatment noncompliance [Recovered/Resolved]
